FAERS Safety Report 9158187 (Version 1)
Quarter: 2013Q1

REPORT INFORMATION
  Report Type: Spontaneous
  Country: PT (occurrence: None)
  Receive Date: 20130211
  Receipt Date: 20130211
  Transmission Date: 20140127
  Serious: Yes (Life-Threatening)
  Sender: FDA-Public Use
  Company Number: FK201300331

PATIENT
  Age: 48 Year
  Sex: Female
  Weight: 78 kg

DRUGS (9)
  1. PROPOFOL [Suspect]
     Indication: INDUCTION OF ANAESTHESIA
     Route: 058
     Dates: start: 20130111, end: 20130111
  2. FENTALILO LABESFAL 0.05 MG/ML (FENTANYL CITRATE) (FENTANYL CITRATE) [Suspect]
     Indication: INDUCTION OF ANAESTHESIA
     Dosage: INTAVENOUS (NOT OTHERWISE SPECIFIED)?
     Route: 042
     Dates: start: 20130111, end: 20130111
  3. CEFAZOLINA LABESFAL [Suspect]
     Indication: PRODUCT USED FOR UNKNOWN INDICATION
     Dosage: INTAVENOUS (NOT OTHERWISE SPECIFIED)?
     Route: 042
     Dates: start: 20130111, end: 20130111
  4. MIDAZOLAM (MIDAZOLAM) (MIDAZOLAM) [Suspect]
     Indication: PRODUCT USED FOR UNKNOWN INDICATION
     Dosage: INTAVENOUS (NOT OTHERWISE SPECIFIED)?
     Route: 042
     Dates: start: 20130111, end: 20130111
  5. SUXAMETHONIUM CHLORIDE [Suspect]
     Indication: PRODUCT USED FOR UNKNOWN INDICATION
  6. ATRACURIUM BESYLATE [Suspect]
     Indication: PRODUCT USED FOR UNKNOWN INDICATION
  7. PARACETAMOL [Suspect]
     Indication: PRODUCT USED FOR UNKNOWN INDICATION
     Dosage: AD?
  8. PATENT BLUE [Suspect]
     Indication: PRODUCT USED FOR UNKNOWN INDICATION
  9. PANTOPRAZOL [Concomitant]

REACTIONS (2)
  - Anaphylactic shock [None]
  - Infusion site oedema [None]
